FAERS Safety Report 6752439-7 (Version None)
Quarter: 2010Q2

REPORT INFORMATION
  Report Type: 
  Country: None (occurrence: None)
  Receive Date: 20100602
  Receipt Date: 20100518
  Transmission Date: 20101027
  Serious: Yes (Hospitalization)
  Sender: FDA-Public Use
  Company Number: FR-ELI_LILLY_AND_COMPANY-FR201005005340

PATIENT
  Sex: Female

DRUGS (2)
  1. OPTRUMA [Suspect]
     Dosage: 1 D/F, DAILY (1/D)
     Route: 048
     Dates: start: 20020101, end: 20100401
  2. OROCAL D(3) [Concomitant]

REACTIONS (1)
  - CEREBRAL ISCHAEMIA [None]
